FAERS Safety Report 18492204 (Version 20)
Quarter: 2022Q3

REPORT INFORMATION
  Report Type: Report from Study
  Country: US (occurrence: US)
  Receive Date: 20201111
  Receipt Date: 20220924
  Transmission Date: 20221026
  Serious: Yes (Hospitalization, Other)
  Sender: FDA-Public Use
  Company Number: NVSC2020US295931

PATIENT
  Sex: Female

DRUGS (3)
  1. ADAKVEO [Suspect]
     Active Substance: CRIZANLIZUMAB-TMCA
     Indication: Sickle cell disease
     Dosage: QMO, INTO BLOODSTREAM VIA VEIN
     Route: 042
  2. ADAKVEO [Suspect]
     Active Substance: CRIZANLIZUMAB-TMCA
     Dosage: UNK
     Route: 042
  3. ATIVAN [Suspect]
     Active Substance: LORAZEPAM
     Indication: Product used for unknown indication
     Dosage: UNK
     Route: 065

REACTIONS (30)
  - Sickle cell anaemia with crisis [Unknown]
  - Haemoglobin decreased [Unknown]
  - Diarrhoea [Unknown]
  - Paraesthesia [Unknown]
  - Weight increased [Unknown]
  - Joint swelling [Unknown]
  - Peripheral swelling [Unknown]
  - Fluid retention [Unknown]
  - Drug hypersensitivity [Unknown]
  - Gait disturbance [Unknown]
  - Aggression [Unknown]
  - Reticulocyte count abnormal [Unknown]
  - Conversion disorder [Unknown]
  - Acute chest syndrome [Unknown]
  - Pneumonia [Unknown]
  - Interstitial lung disease [Unknown]
  - Purulence [Unknown]
  - Lethargy [Unknown]
  - Headache [Unknown]
  - Pain [Unknown]
  - Iron deficiency [Unknown]
  - Pain in extremity [Unknown]
  - Bone pain [Unknown]
  - Nausea [Unknown]
  - Arthralgia [Unknown]
  - Agitation [Unknown]
  - Fatigue [Unknown]
  - Oxygen saturation abnormal [Unknown]
  - Depression [Unknown]
  - Dyspnoea [Unknown]
